FAERS Safety Report 6571819-6 (Version None)
Quarter: 2010Q1

REPORT INFORMATION
  Report Type: 
  Country: None (occurrence: None)
  Receive Date: 20100205
  Receipt Date: 20100128
  Transmission Date: 20100710
  Serious: Yes (Hospitalization)
  Sender: FDA-Public Use
  Company Number: FR-ABBOTT-09P-056-0608289-00

PATIENT
  Sex: Male

DRUGS (9)
  1. NORVIR [Suspect]
     Indication: HIV INFECTION
     Route: 048
     Dates: start: 20091016, end: 20091024
  2. NORVIR [Suspect]
     Route: 048
     Dates: start: 20091027
  3. NORVIR [Suspect]
     Dates: start: 20091106
  4. KIVEXA [Suspect]
     Indication: HIV INFECTION
     Dates: start: 20091016, end: 20091024
  5. KIVEXA [Suspect]
     Dates: start: 20091027
  6. PREZISTA [Suspect]
     Indication: HIV INFECTION
     Route: 048
     Dates: start: 20091016, end: 20091024
  7. PREZISTA [Suspect]
     Route: 048
     Dates: start: 20091027
  8. PREZISTA [Suspect]
     Dates: start: 20091106
  9. TRUVADA [Concomitant]
     Indication: HIV INFECTION
     Dates: start: 20091106

REACTIONS (8)
  - CHILLS [None]
  - HYPERSENSITIVITY [None]
  - INFLUENZA LIKE ILLNESS [None]
  - MALAISE [None]
  - MYALGIA [None]
  - PRURIGO [None]
  - PYREXIA [None]
  - RENAL FAILURE ACUTE [None]
